FAERS Safety Report 6354200-4 (Version None)
Quarter: 2009Q3

REPORT INFORMATION
  Report Type: 
  Country: None (occurrence: None)
  Receive Date: 20090914
  Receipt Date: 20090902
  Transmission Date: 20100115
  Serious: Yes (Other)
  Sender: FDA-Public Use
  Company Number: PHHY2009MX37639

PATIENT
  Sex: Female

DRUGS (4)
  1. DIOVAN HCT [Suspect]
     Indication: HYPERTENSION
     Dosage: 1 TABLET (160/12.5 MG) PER DAY
     Route: 048
     Dates: start: 20070901
  2. DIOVAN HCT [Suspect]
     Dosage: 2 TABLETS (160/12.5 MG) DAILY
     Route: 048
     Dates: start: 20090819
  3. DIOVAN HCT [Suspect]
     Dosage: 1 TABLET (160/12.5 MG) DAILY
     Route: 048
     Dates: start: 20090820
  4. FLANAX [Concomitant]
     Indication: GINGIVITIS
     Dosage: 1 TABLET PER DAY
     Route: 048
     Dates: start: 20090601

REACTIONS (6)
  - ANXIETY [None]
  - CHEST PAIN [None]
  - FACIAL PALSY [None]
  - HYPOAESTHESIA [None]
  - INFLAMMATION [None]
  - OEDEMA PERIPHERAL [None]
